FAERS Safety Report 21650533 (Version 1)
Quarter: 2022Q4

REPORT INFORMATION
  Report Type: Spontaneous
  Country: US (occurrence: None)
  Receive Date: 20221124
  Receipt Date: 20221124
  Transmission Date: 20230113
  Serious: No
  Sender: FDA-Public Use
  Company Number: None

PATIENT
  Age: 6 Year
  Sex: Female
  Weight: 26.1 kg

DRUGS (4)
  1. QELBREE [Suspect]
     Active Substance: VILOXAZINE HYDROCHLORIDE
     Indication: Attention deficit hyperactivity disorder
     Dates: start: 20221014, end: 20221026
  2. Advair 45-21 2P BID [Concomitant]
  3. albuterol HFA prn [Concomitant]
  4. Melatonin 3 mg [Concomitant]

REACTIONS (3)
  - Nightmare [None]
  - Sleep disorder [None]
  - Fear [None]

NARRATIVE: CASE EVENT DATE: 20221014
